FAERS Safety Report 7997307-8 (Version None)
Quarter: 2011Q4

REPORT INFORMATION
  Report Type: 
  Country: None (occurrence: None)
  Receive Date: 20111221
  Receipt Date: 20111212
  Transmission Date: 20120403
  Serious: Yes (Other)
  Sender: FDA-Public Use
  Company Number: US-BAYER-2011-121814

PATIENT
  Sex: Female

DRUGS (3)
  1. PLAVIX [Interacting]
  2. ACETYLSALICYLIC ACID SRT [Suspect]
  3. RIVAROXABAN [Interacting]
     Indication: ATRIAL FIBRILLATION
     Dosage: DOSAGE FORM: TABLET
     Route: 048
     Dates: start: 20110101

REACTIONS (1)
  - EPISTAXIS [None]
